FAERS Safety Report 10109450 (Version 2)
Quarter: 2014Q4

REPORT INFORMATION
  Report Type: Other
  Country: US (occurrence: US)
  Receive Date: 20140425
  Receipt Date: 20141013
  Transmission Date: 20150528
  Serious: Yes (Hospitalization, Other)
  Sender: FDA-Public Use
  Company Number: US-GSKPPD-2014GSK008114

PATIENT
  Age: 65 Year
  Sex: Male

DRUGS (5)
  1. ASPIRIN. [Concomitant]
     Active Substance: ASPIRIN
  2. LISINOPRIL. [Concomitant]
     Active Substance: LISINOPRIL
  3. AVANDIA [Suspect]
     Active Substance: ROSIGLITAZONE MALEATE
     Indication: DIABETES MELLITUS
     Dosage: AVANDIA WAS NOT LISTED AMONG THE PATIENTS RECORDS REVIEWED.
     Route: 048
  4. ADALAT CC [Concomitant]
     Active Substance: NIFEDIPINE
  5. METOPROLOL TARTRATE. [Concomitant]
     Active Substance: METOPROLOL TARTRATE

REACTIONS (3)
  - Myocardial infarction [Unknown]
  - Transient ischaemic attack [Recovered/Resolved]
  - Cardiomyopathy [Recovered/Resolved]

NARRATIVE: CASE EVENT DATE: 20031212
